FAERS Safety Report 10086806 (Version 4)
Quarter: 2014Q2

REPORT INFORMATION
  Report Type: Spontaneous
  Country: US (occurrence: US)
  Receive Date: 20140418
  Receipt Date: 20140613
  Transmission Date: 20141212
  Serious: Yes (Hospitalization)
  Sender: FDA-Public Use
  Company Number: US-GLAXOSMITHKLINE-A1069290A

PATIENT
  Age: 23 Month
  Sex: Male

DRUGS (2)
  1. CEFTIN [Suspect]
     Indication: PRODUCT USED FOR UNKNOWN INDICATION
     Dosage: .5TSP TWICE PER DAY
     Route: 048
     Dates: start: 20140407
  2. NO CONCURRENT MEDICATION [Concomitant]

REACTIONS (2)
  - Investigation [Recovered/Resolved]
  - Product quality issue [Unknown]
